FAERS Safety Report 25252136 (Version 3)
Quarter: 2025Q2

REPORT INFORMATION
  Report Type: Report from Study
  Country: CA (occurrence: CA)
  Receive Date: 20250429
  Receipt Date: 20250509
  Transmission Date: 20250717
  Serious: Yes (Hospitalization, Other)
  Sender: HLS THERAPEUTICS
  Company Number: CA-HLS-202500940

PATIENT
  Age: 67 Year
  Sex: Female
  Weight: 54 kg

DRUGS (4)
  1. CLOZARIL [Suspect]
     Active Substance: CLOZAPINE
     Indication: Schizoaffective disorder
     Route: 048
     Dates: start: 20100705, end: 20250401
  2. CLOZARIL [Suspect]
     Active Substance: CLOZAPINE
     Indication: Schizoaffective disorder
     Dosage: 250 MG ONCE A DAY AT BEDTIME
     Route: 048
     Dates: start: 20250411
  3. CLOZARIL [Suspect]
     Active Substance: CLOZAPINE
     Indication: Schizoaffective disorder
     Dosage: 300 MG  ONCE A DAY AT BEDTIME
     Route: 048
     Dates: start: 20250409, end: 20250411
  4. CLOZARIL [Suspect]
     Active Substance: CLOZAPINE
     Indication: Schizoaffective disorder
     Dosage: 450 MG ONCE A DAY AT BEDTIME
     Route: 048
     Dates: start: 20250401, end: 20250409

REACTIONS (5)
  - Neutrophilia [Recovered/Resolved]
  - Lower respiratory tract infection [Recovering/Resolving]
  - Depressed level of consciousness [Recovering/Resolving]
  - Staphylococcal bacteraemia [Recovering/Resolving]
  - Leukocytosis [Recovered/Resolved]

NARRATIVE: CASE EVENT DATE: 20250401
